FAERS Safety Report 5496162-8 (Version None)
Quarter: 2007Q4

REPORT INFORMATION
  Report Type: 
  Country: None (occurrence: None)
  Receive Date: 20071023
  Receipt Date: 20071023
  Transmission Date: 20080405
  Serious: No
  Sender: FDA-Public Use
  Company Number: None

PATIENT
  Sex: Male
  Weight: 108.8633 kg

DRUGS (1)
  1. FENTORA [Suspect]
     Indication: BREAKTHROUGH PAIN
     Dosage: ONE TABLET ABOUT 3 DAY BUCCAL
     Route: 002
     Dates: start: 20050901, end: 20071022

REACTIONS (1)
  - PHARMACEUTICAL PRODUCT COMPLAINT [None]
